FAERS Safety Report 7528082-9 (Version None)
Quarter: 2011Q2

REPORT INFORMATION
  Report Type: 
  Country: None (occurrence: None)
  Receive Date: 20110607
  Receipt Date: 20110525
  Transmission Date: 20111010
  Serious: Yes (Other)
  Sender: FDA-Public Use
  Company Number: US-BAYER-2011-031598

PATIENT
  Sex: Female
  Weight: 81.633 kg

DRUGS (3)
  1. YAZ [Suspect]
     Indication: PREMENSTRUAL SYNDROME
     Dosage: UNK
     Dates: start: 20030101, end: 20080101
  2. YAZ [Suspect]
  3. SARAFEM [Concomitant]
     Dosage: 20 MG, UNK

REACTIONS (3)
  - CHOLELITHIASIS [None]
  - PAIN [None]
  - INJURY [None]
